FAERS Safety Report 5794262-6 (Version None)
Quarter: 2008Q2

REPORT INFORMATION
  Report Type: 
  Country: None (occurrence: None)
  Receive Date: 20080627
  Receipt Date: 20080617
  Transmission Date: 20081010
  Serious: Yes (Other)
  Sender: FDA-Public Use
  Company Number: US-PFIZER INC-2008051671

PATIENT
  Sex: Male
  Weight: 85.7 kg

DRUGS (4)
  1. CHANTIX [Suspect]
     Indication: SMOKING CESSATION THERAPY
     Dates: start: 20080509, end: 20080529
  2. NEURONTIN [Suspect]
     Indication: MUSCULOSKELETAL DISCOMFORT
     Dosage: DAILY DOSE:800MG
  3. SYNTHROID [Concomitant]
     Indication: THYROID DISORDER
  4. ALEVE [Concomitant]

REACTIONS (8)
  - ANAPHYLACTIC SHOCK [None]
  - CARDIAC DISORDER [None]
  - DEPRESSED LEVEL OF CONSCIOUSNESS [None]
  - DYSPNOEA [None]
  - FEELING ABNORMAL [None]
  - NAUSEA [None]
  - PANCREATITIS [None]
  - RASH [None]
